FAERS Safety Report 7952701-6 (Version None)
Quarter: 2011Q4

REPORT INFORMATION
  Report Type: 
  Country: None (occurrence: None)
  Receive Date: 20111129
  Receipt Date: 20111101
  Transmission Date: 20120403
  Serious: Yes (Other)
  Sender: FDA-Public Use
  Company Number: B0762102A

PATIENT
  Age: 23 Year
  Sex: Male
  Weight: 66.8602 kg

DRUGS (1)
  1. ACITRETIN [Suspect]
     Indication: PUSTULAR PSORIASIS
     Dosage: 40 MG/ PER DAY

REACTIONS (10)
  - RHONCHI [None]
  - LUNG CONSOLIDATION [None]
  - RESPIRATORY DISTRESS [None]
  - HYPOTENSION [None]
  - HYPOXIA [None]
  - RALES [None]
  - PLEURAL EFFUSION [None]
  - PYREXIA [None]
  - COUGH [None]
  - TACHYCARDIA [None]
